FAERS Safety Report 5154081-0 (Version None)
Quarter: 2006Q4

REPORT INFORMATION
  Report Type: 
  Country: None (occurrence: None)
  Receive Date: 20061116
  Receipt Date: 20061116
  Transmission Date: 20070319
  Serious: Yes (Other)
  Sender: FDA-Public Use
  Company Number: None

PATIENT
  Age: 17 Year
  Sex: Male
  Weight: 60 kg

DRUGS (6)
  1. AZTREONAM [Suspect]
     Indication: DISEASE RECURRENCE
     Dosage: 2 GRAMS Q12 IV BOLUS   ONE TIME DOSE
     Route: 040
     Dates: start: 20061111, end: 20061111
  2. AZTREONAM [Suspect]
     Indication: PYELONEPHRITIS
     Dosage: 2 GRAMS Q12 IV BOLUS   ONE TIME DOSE
     Route: 040
     Dates: start: 20061111, end: 20061111
  3. GENTAMICIN [Concomitant]
  4. LEVOFLOXACIN [Concomitant]
  5. IBUPROFEN [Concomitant]
  6. OXYCODONE/ACETAMINOPHEN [Concomitant]

REACTIONS (1)
  - RASH [None]
